FAERS Safety Report 8532713-4 (Version None)
Quarter: 2012Q3

REPORT INFORMATION
  Report Type: 
  Country: None (occurrence: None)
  Receive Date: 20120724
  Receipt Date: 20120718
  Transmission Date: 20120928
  Serious: Yes (Hospitalization)
  Sender: FDA-Public Use
  Company Number: PHHO2012FR010751

PATIENT
  Sex: Male
  Weight: 25 kg

DRUGS (8)
  1. ADRIAMYCIN PFS [Concomitant]
     Indication: ACUTE LYMPHOCYTIC LEUKAEMIA
     Dosage: 22.5 MG/INFUSION
     Route: 042
     Dates: start: 20120322, end: 20120413
  2. CYTARABINE [Concomitant]
     Indication: ACUTE LYMPHOCYTIC LEUKAEMIA
     Dosage: 75 MG/INFUSION
     Route: 042
     Dates: start: 20120429, end: 20120502
  3. THIOGUANINE [Concomitant]
     Indication: ACUTE LYMPHOCYTIC LEUKAEMIA
     Dosage: 60 MG/DAY
     Route: 048
     Dates: start: 20120427, end: 20120508
  4. IMATINIB MESYLATE [Suspect]
     Indication: ACUTE LYMPHOCYTIC LEUKAEMIA
     Dosage: 300 MG/J
     Route: 048
     Dates: start: 20120315, end: 20120524
  5. DEXAMETHASONE [Concomitant]
     Indication: ACUTE LYMPHOCYTIC LEUKAEMIA
     Dosage: 9 MG/J
     Route: 048
     Dates: start: 20120315, end: 20120405
  6. VINORELBINE [Concomitant]
     Indication: ACUTE LYMPHOCYTIC LEUKAEMIA
     Dosage: 1.3 MG/INFUSION
     Route: 042
     Dates: start: 20120322, end: 20120413
  7. CYCLOPHOSPHAMIDE [Concomitant]
     Indication: ACUTE LYMPHOCYTIC LEUKAEMIA
     Dosage: 1000 MG, UNK
     Route: 042
     Dates: start: 20120327, end: 20120415
  8. CYCLOPHOSPHAMIDE [Concomitant]
     Dosage: 1000 MG, UNK
     Route: 042
     Dates: start: 20120425

REACTIONS (2)
  - DEPRESSION SUICIDAL [None]
  - HALLUCINATION [None]
